FAERS Safety Report 8950423 (Version 1)
Quarter: 2012Q4

REPORT INFORMATION
  Report Type: 
  Country: JP (occurrence: JP)
  Receive Date: 20121207
  Receipt Date: 20121207
  Transmission Date: 20130627
  Serious: Yes (Other)
  Sender: FDA-Public Use
  Company Number: JP-ELI_LILLY_AND_COMPANY-JP201205004877

PATIENT
  Sex: Female

DRUGS (3)
  1. FORTEO [Suspect]
     Dosage: UNK
     Route: 058
     Dates: start: 20120328, end: 20120621
  2. FORTEO [Suspect]
     Dosage: UNK
     Route: 058
     Dates: start: 20120718
  3. FORTEO [Suspect]
     Dosage: UNK
     Route: 058
     Dates: start: 20120825

REACTIONS (10)
  - Malignant neoplasm of ampulla of Vater [Unknown]
  - Jaundice cholestatic [Unknown]
  - Glaucoma [Unknown]
  - Arthralgia [Unknown]
  - Collagen disorder [Unknown]
  - Faecal volume increased [Unknown]
  - Swollen tongue [Unknown]
  - Stomatitis [Unknown]
  - Dyspepsia [Unknown]
  - Constipation [Unknown]
